FAERS Safety Report 4428883-X (Version None)
Quarter: 2004Q3

REPORT INFORMATION
  Report Type: 
  Country: None (occurrence: None)
  Receive Date: 20040817
  Receipt Date: 20040803
  Transmission Date: 20050211
  Serious: Yes (Death, Hospitalization, Other)
  Sender: FDA-Public Use
  Company Number: 04-00466

PATIENT
  Age: 92 Year
  Sex: Male

DRUGS (16)
  1. FAMOTDINE [Suspect]
     Dosage: 20 MG, TWICE DAILY, NG TUBE
  2. GLYBURIDE [Concomitant]
  3. LISINOPRIL [Concomitant]
  4. FUROSEMIDE [Concomitant]
  5. COLACE [Concomitant]
  6. HYDROCODONE/ACETAMINOPHEN [Concomitant]
  7. ZOLPIDEM TARTRATE [Concomitant]
  8. VANCOMYCIN [Concomitant]
  9. TICARCILLIN-CLAVULANATE [Concomitant]
  10. ASPIRIN [Concomitant]
  11. UNFRACTIONATED HEPARIN [Concomitant]
  12. METOPROLOL [Concomitant]
  13. INTRAVENOUS FENTANYL [Concomitant]
  14. INTRAVENOUS MIDAZOLAM [Concomitant]
  15. SUBCUTANEOUS VITAMIN K [Concomitant]
  16. REGULAR INSULIN INFUSION [Concomitant]

REACTIONS (6)
  - CONDITION AGGRAVATED [None]
  - ELECTROCARDIOGRAM QT PROLONGED [None]
  - MULTI-ORGAN FAILURE [None]
  - SEPSIS [None]
  - TORSADE DE POINTES [None]
  - VENTRICULAR TACHYCARDIA [None]
